FAERS Safety Report 24029342 (Version 1)
Quarter: 2024Q2

REPORT INFORMATION
  Report Type: Report from Study
  Country: CA (occurrence: CA)
  Receive Date: 20240628
  Receipt Date: 20240628
  Transmission Date: 20240716
  Serious: Yes (Hospitalization)
  Sender: FDA-Public Use
  Company Number: CA-AKCEA THERAPEUTICS, INC.-2024IS005682

PATIENT

DRUGS (11)
  1. TEGSEDI [Suspect]
     Active Substance: INOTERSEN SODIUM
     Indication: Hereditary neuropathic amyloidosis
     Dosage: 284 MG, QW (STRENGTH: 300 MG)
     Route: 058
     Dates: start: 20200617
  2. PANTOPRAZOLE MAGNESIUM [Suspect]
     Active Substance: PANTOPRAZOLE MAGNESIUM
     Indication: Gastric pH increased
     Dosage: 40 MILLIGRAM, QD
     Route: 065
  3. PANTOPRAZOLE [Suspect]
     Active Substance: PANTOPRAZOLE
     Indication: Gastrointestinal disorder
     Dosage: 40 MILLIGRAM
     Route: 065
  4. METOCLOPRAMIDE [Suspect]
     Active Substance: METOCLOPRAMIDE
     Indication: Nausea
     Dosage: 10 MILLIGRAM TWO-THREE TIMES A DAY
     Route: 065
     Dates: end: 20230723
  5. AVENTYL [Concomitant]
     Active Substance: NORTRIPTYLINE HYDROCHLORIDE
     Indication: Neuropathy peripheral
     Dosage: 10 MG, QD
     Route: 048
     Dates: start: 202011
  6. ALBUTEROL [Concomitant]
     Active Substance: ALBUTEROL
     Indication: Product used for unknown indication
     Dosage: UNK
  7. VENTOLIN [Concomitant]
     Active Substance: ALBUTEROL SULFATE
     Indication: Product used for unknown indication
     Dosage: UNK
  8. FUROSEMIDE [Concomitant]
     Active Substance: FUROSEMIDE
     Indication: Diuretic therapy
     Dosage: UNK
     Route: 065
  9. TAFAMIDIS [Concomitant]
     Active Substance: TAFAMIDIS
     Indication: Cardiomyopathy
     Dosage: UNK
     Route: 048
     Dates: end: 20200606
  10. BENZOCAINE [Concomitant]
     Active Substance: BENZOCAINE
     Indication: Product used for unknown indication
     Route: 065
  11. VYNDAMAX [Concomitant]
     Active Substance: TAFAMIDIS
     Indication: Product used for unknown indication
     Route: 065

REACTIONS (17)
  - Blood pressure decreased [Not Recovered/Not Resolved]
  - Asthenia [Not Recovered/Not Resolved]
  - Urinary retention [Not Recovered/Not Resolved]
  - Cystitis [Not Recovered/Not Resolved]
  - Fluid intake reduced [Not Recovered/Not Resolved]
  - Vomiting [Not Recovered/Not Resolved]
  - Decreased appetite [Not Recovered/Not Resolved]
  - Nausea [Not Recovered/Not Resolved]
  - Gastric pH increased [Not Recovered/Not Resolved]
  - Cough [Not Recovered/Not Resolved]
  - White blood cell count decreased [Not Recovered/Not Resolved]
  - Fluid retention [Recovered/Resolved]
  - Gastrointestinal disorder [Recovering/Resolving]
  - Peripheral swelling [Recovered/Resolved]
  - Drug hypersensitivity [Recovering/Resolving]
  - Glomerular filtration rate decreased [Not Recovered/Not Resolved]
  - Platelet count decreased [Not Recovered/Not Resolved]

NARRATIVE: CASE EVENT DATE: 20230623
